FAERS Safety Report 8011314-0 (Version None)
Quarter: 2011Q4

REPORT INFORMATION
  Report Type: 
  Country: None (occurrence: None)
  Receive Date: 20111228
  Receipt Date: 20111220
  Transmission Date: 20120403
  Serious: Yes (Other)
  Sender: FDA-Public Use
  Company Number: US-PFIZER INC-2011307433

PATIENT
  Sex: Female
  Weight: 95.238 kg

DRUGS (4)
  1. LYRICA [Suspect]
     Indication: FIBROMYALGIA
  2. DILAUDID [Suspect]
     Indication: PAIN
     Dosage: UNK
  3. METHADONE HCL [Suspect]
     Indication: PAIN
     Dosage: 10 MG, 4X/DAY
  4. LYRICA [Suspect]
     Indication: COMPLEX REGIONAL PAIN SYNDROME
     Dosage: 300 MG, 3X/DAY
     Dates: end: 20111201

REACTIONS (7)
  - NEURALGIA [None]
  - PAIN [None]
  - PRURITUS GENERALISED [None]
  - EYE PRURITUS [None]
  - DRUG INEFFECTIVE [None]
  - DRUG WITHDRAWAL SYNDROME [None]
  - MALAISE [None]
